FAERS Safety Report 6672337-7 (Version None)
Quarter: 2010Q2

REPORT INFORMATION
  Report Type: 
  Country: None (occurrence: None)
  Receive Date: 20100408
  Receipt Date: 20100211
  Transmission Date: 20101027
  Serious: No
  Sender: FDA-Public Use
  Company Number: A0842423A

PATIENT
  Age: 64 Year
  Sex: Female

DRUGS (1)
  1. REQUIP XL [Suspect]
     Indication: DRUG USE FOR UNKNOWN INDICATION
     Dosage: 8MG UNKNOWN
     Route: 065
     Dates: start: 20100101, end: 20100101

REACTIONS (2)
  - DRUG INTOLERANCE [None]
  - MALAISE [None]
